FAERS Safety Report 7381625-0 (Version None)
Quarter: 2011Q1

REPORT INFORMATION
  Report Type: 
  Country: None (occurrence: None)
  Receive Date: 20110329
  Receipt Date: 20101006
  Transmission Date: 20110831
  Serious: Yes (Other)
  Sender: FDA-Public Use
  Company Number: US-BAYER-200942773NA

PATIENT
  Sex: Female
  Weight: 63.492 kg

DRUGS (7)
  1. ANAPROX DS [Concomitant]
     Dosage: UNK
     Dates: start: 20030501
  2. YASMIN [Suspect]
     Indication: CONTRACEPTION
     Dosage: 1 DF (DAILY DOSE), QD, ORAL
     Route: 048
     Dates: start: 20030501, end: 20030901
  3. NAPROXEN [Concomitant]
     Dosage: UNK
     Dates: start: 20030501
  4. YASMIN [Suspect]
     Indication: PREMENSTRUAL SYNDROME
  5. PLAVIX [Concomitant]
     Dosage: UNK
     Dates: start: 20030424
  6. DICLOFENAC SODIUM [Concomitant]
     Dosage: UNK
     Dates: start: 20030901
  7. DICLOFENAC SODIUM [Concomitant]
     Dosage: UNK
     Dates: start: 20020901

REACTIONS (3)
  - CEREBROVASCULAR ACCIDENT [None]
  - INJURY [None]
  - LACUNAR INFARCTION [None]
